FAERS Safety Report 17841112 (Version 1)
Quarter: 2020Q2

REPORT INFORMATION
  Report Type: Spontaneous
  Country: CN (occurrence: CN)
  Receive Date: 20200529
  Receipt Date: 20200529
  Transmission Date: 20200714
  Serious: Yes (Hospitalization)
  Sender: FDA-Public Use
  Company Number: CN-PFIZER INC-2020209702

PATIENT
  Age: 54 Year
  Sex: Male
  Weight: 90 kg

DRUGS (2)
  1. METHOTREXATE. [Suspect]
     Active Substance: METHOTREXATE
     Indication: ACUTE LEUKAEMIA
  2. METHOTREXATE. [Suspect]
     Active Substance: METHOTREXATE
     Indication: CHEMOTHERAPY
     Dosage: 6.6 G, 1X/DAY
     Route: 041
     Dates: start: 20200510, end: 20200510

REACTIONS (2)
  - Acute kidney injury [Recovering/Resolving]
  - Drug clearance decreased [Recovering/Resolving]

NARRATIVE: CASE EVENT DATE: 20200512
